FAERS Safety Report 4732069-9 (Version None)
Quarter: 2005Q3

REPORT INFORMATION
  Report Type: 
  Country: None (occurrence: None)
  Receive Date: 20050722
  Receipt Date: 20040604
  Transmission Date: 20060218
  Serious: Yes (Hospitalization)
  Sender: FDA-Public Use
  Company Number: 04P-131-0258793-00

PATIENT
  Age: 36 Year
  Sex: Male
  Weight: 74.3899 kg

DRUGS (7)
  1. NORVIR [Suspect]
     Dosage: PER ORAL
     Route: 048
  2. SAQUINAVIR MESILATE [Suspect]
  3. LAMIVUDINE + ZIDOVUDINE [Suspect]
     Indication: HIV INFECTION
     Dosage: PER ORAL
     Route: 048
     Dates: start: 20030728
  4. FLUCONAZOLE [Concomitant]
  5. BACTRIM [Concomitant]
  6. ROTECT PLUS [Concomitant]
  7. CIMETIDINE [Concomitant]

REACTIONS (1)
  - HAEMOLYTIC ANAEMIA [None]
